FAERS Safety Report 13334899 (Version 1)
Quarter: 2017Q1

REPORT INFORMATION
  Report Type: Report from Study
  Country: CZ (occurrence: CZ)
  Receive Date: 20170315
  Receipt Date: 20170315
  Transmission Date: 20170428
  Serious: Yes (Hospitalization)
  Sender: FDA-Public Use
  Company Number: CZ-BAXTER-2017BAX010322

PATIENT
  Age: 65 Year
  Sex: Male
  Weight: 114 kg

DRUGS (22)
  1. LOMIR [Concomitant]
     Indication: HYPERTENSION
     Route: 048
  2. UBRETID [Concomitant]
     Active Substance: DISTIGMINE BROMIDE
     Indication: PRODUCT USED FOR UNKNOWN INDICATION
     Route: 048
     Dates: start: 20170221, end: 20170221
  3. MICARDISPLUS [Concomitant]
     Active Substance: HYDROCHLOROTHIAZIDE\TELMISARTAN
     Indication: HYPERTENSION
     Dosage: 80 MG/125 MG
     Route: 048
  4. OXAZEPAM. [Concomitant]
     Active Substance: OXAZEPAM
     Indication: PRODUCT USED FOR UNKNOWN INDICATION
     Route: 048
     Dates: start: 20170218, end: 20170218
  5. AZEPO [Concomitant]
     Indication: PROPHYLAXIS
     Route: 042
     Dates: start: 20170220, end: 20170220
  6. QUAMATEL [Concomitant]
     Active Substance: FAMOTIDINE
     Indication: PROPHYLAXIS
     Route: 042
     Dates: start: 20170220, end: 20170221
  7. TISSEEL ROZTOKY PRO TK?NOV? LEPIDLO [Suspect]
     Active Substance: APROTININ\CALCIUM CHLORIDE\FIBRINOGEN HUMAN\FACTOR XIII CONCENTRATE (HUMAN)\THROMBIN
     Route: 061
     Dates: start: 20170220, end: 20170220
  8. FORTECORTIN [Concomitant]
     Active Substance: DEXAMETHASONE
     Route: 048
     Dates: start: 20170228, end: 20170228
  9. SUFENTANIL [Concomitant]
     Active Substance: SUFENTANIL
     Indication: PRODUCT USED FOR UNKNOWN INDICATION
     Route: 042
     Dates: start: 20170220, end: 20170220
  10. TISSEEL ROZTOKY PRO TK?NOV? LEPIDLO [Suspect]
     Active Substance: APROTININ\CALCIUM CHLORIDE\FIBRINOGEN HUMAN\FACTOR XIII CONCENTRATE (HUMAN)\THROMBIN
     Indication: TISSUE SEALING
     Route: 061
     Dates: start: 20170220, end: 20170220
  11. DEXAMED [Concomitant]
     Route: 042
     Dates: start: 20170220, end: 20170220
  12. FORTECORTIN [Concomitant]
     Active Substance: DEXAMETHASONE
     Indication: PROPHYLAXIS
     Route: 048
     Dates: start: 20170221, end: 20170226
  13. TRACRIUM [Concomitant]
     Active Substance: ATRACURIUM BESYLATE
     Indication: PRODUCT USED FOR UNKNOWN INDICATION
     Route: 042
     Dates: start: 20170220, end: 20170220
  14. PROPOFOL. [Concomitant]
     Active Substance: PROPOFOL
     Indication: PRODUCT USED FOR UNKNOWN INDICATION
     Route: 042
     Dates: start: 20170220, end: 20170220
  15. FRAXIPARINE [Concomitant]
     Active Substance: NADROPARIN CALCIUM
     Indication: ATRIAL FIBRILLATION
     Route: 058
     Dates: start: 20170218, end: 20170218
  16. FRAXIPARINE [Concomitant]
     Active Substance: NADROPARIN CALCIUM
     Indication: PROPHYLAXIS
     Route: 058
     Dates: start: 20170221, end: 20170301
  17. FORTECORTIN [Concomitant]
     Active Substance: DEXAMETHASONE
     Route: 048
     Dates: start: 20170227, end: 20170227
  18. DEXAMED [Concomitant]
     Indication: PROPHYLAXIS
     Route: 042
     Dates: start: 20170220, end: 20170220
  19. MILURIT [Concomitant]
     Active Substance: ALLOPURINOL
     Indication: HYPERURICAEMIA
     Route: 048
  20. NOVALGIN [Concomitant]
     Active Substance: METAMIZOLE SODIUM
     Indication: HEADACHE
     Route: 042
     Dates: start: 20170220, end: 20170220
  21. HELICID [Concomitant]
     Indication: PROPHYLAXIS
     Route: 048
     Dates: start: 20170222, end: 20170301
  22. NORADRENALIN [Concomitant]
     Active Substance: NOREPINEPHRINE\NOREPINEPHRINE BITARTRATE
     Indication: PRODUCT USED FOR UNKNOWN INDICATION
     Route: 042
     Dates: start: 20170220, end: 20170220

REACTIONS (1)
  - Cerebrospinal fluid leakage [Recovered/Resolved]

NARRATIVE: CASE EVENT DATE: 20170302
